FAERS Safety Report 5342598-5 (Version None)
Quarter: 2007Q2

REPORT INFORMATION
  Report Type: 
  Country: None (occurrence: None)
  Receive Date: 20070601
  Receipt Date: 20070319
  Transmission Date: 20071010
  Serious: No
  Sender: FDA-Public Use
  Company Number: A0643989A

PATIENT
  Age: 43 Year
  Sex: Female

DRUGS (3)
  1. AUGMENTIN '125' [Suspect]
     Indication: ACUTE SINUSITIS
     Dosage: 2TAB TWICE PER DAY
     Route: 048
  2. AMOXICILLIN [Suspect]
     Indication: ACUTE SINUSITIS
     Dosage: 1500MG THREE TIMES PER DAY
  3. DEPAKOTE [Concomitant]

REACTIONS (5)
  - APALLIC SYNDROME [None]
  - COUGH [None]
  - DIARRHOEA [None]
  - OVERDOSE [None]
  - SNEEZING [None]
